FAERS Safety Report 16336430 (Version 1)
Quarter: 2019Q2

REPORT INFORMATION
  Report Type: Spontaneous
  Country: US (occurrence: US)
  Receive Date: 20190520
  Receipt Date: 20190520
  Transmission Date: 20190711
  Serious: Yes (Other)
  Sender: FDA-Public Use
  Company Number: None

PATIENT
  Age: 51 Year
  Sex: Female

DRUGS (1)
  1. EYLEA [Suspect]
     Active Substance: AFLIBERCEPT
     Indication: DIABETIC RETINAL OEDEMA
     Dosage: ?          OTHER FREQUENCY:PLANNED MONTHLY;?
     Route: 031
     Dates: start: 20190422, end: 20190422

REACTIONS (3)
  - Injection site reaction [None]
  - Vitreous floaters [None]
  - Vitreous disorder [None]
